FAERS Safety Report 10431825 (Version 1)
Quarter: 2014Q3

REPORT INFORMATION
  Report Type: Spontaneous
  Country: US (occurrence: US)
  Receive Date: 20140905
  Receipt Date: 20140905
  Transmission Date: 20150326
  Serious: Yes (Other)
  Sender: FDA-Public Use
  Company Number: US-AMGEN-USASP2014066794

PATIENT
  Age: 65 Year
  Sex: Female

DRUGS (3)
  1. PRAVASTATIN [Concomitant]
     Active Substance: PRAVASTATIN\PRAVASTATIN SODIUM
     Indication: BLOOD CHOLESTEROL
  2. PRAVASTATIN [Concomitant]
     Active Substance: PRAVASTATIN\PRAVASTATIN SODIUM
     Indication: CEREBROVASCULAR ACCIDENT
  3. PROLIA [Suspect]
     Active Substance: DENOSUMAB
     Indication: OSTEOPOROSIS POSTMENOPAUSAL
     Dosage: 60 MG, Q6MO
     Route: 065
     Dates: start: 20140522

REACTIONS (16)
  - Pain [Not Recovered/Not Resolved]
  - Pyrexia [Unknown]
  - White blood cell count decreased [Unknown]
  - Fatigue [Not Recovered/Not Resolved]
  - Low density lipoprotein abnormal [Unknown]
  - Skin hypertrophy [Unknown]
  - Chills [Unknown]
  - High density lipoprotein abnormal [Unknown]
  - Tooth loss [Unknown]
  - Secretion discharge [Unknown]
  - Skin ulcer [Unknown]
  - Rash [Not Recovered/Not Resolved]
  - Bone loss [Unknown]
  - Nausea [Not Recovered/Not Resolved]
  - Pain in jaw [Unknown]
  - Tooth disorder [Unknown]

NARRATIVE: CASE EVENT DATE: 2014
